FAERS Safety Report 19141050 (Version 1)
Quarter: 2021Q2

REPORT INFORMATION
  Report Type: Report from Study
  Country: JP (occurrence: JP)
  Receive Date: 20210415
  Receipt Date: 20210415
  Transmission Date: 20210717
  Serious: Yes (Other)
  Sender: FDA-Public Use
  Company Number: JP-TEVA-2021-JP-1901792

PATIENT
  Age: 88 Year
  Sex: Female
  Weight: 44 kg

DRUGS (11)
  1. BLOPRESS [Concomitant]
     Active Substance: CANDESARTAN CILEXETIL
  2. LEVODOPA [Concomitant]
     Active Substance: LEVODOPA
  3. EDIROL [Concomitant]
     Active Substance: ELDECALCITOL
  4. ZONISAMIDE. [Concomitant]
     Active Substance: ZONISAMIDE
  5. NORVASC [Concomitant]
     Active Substance: AMLODIPINE BESYLATE
  6. RASAGILINE MESYLATE (RASAGILINE MESYLATE) TABLET [Suspect]
     Active Substance: RASAGILINE MESYLATE
     Indication: PARKINSON^S DISEASE
     Dosage: 1 MILLIGRAM DAILY;
     Route: 065
     Dates: start: 20190613, end: 20190829
  7. LYRICA [Concomitant]
     Active Substance: PREGABALIN
  8. SODIUM PICOSULFATE [Concomitant]
     Active Substance: SODIUM PICOSULFATE
  9. MAGMITT [Concomitant]
     Active Substance: MAGNESIUM OXIDE
  10. RECALBON [Concomitant]
  11. OPALMON [Concomitant]
     Active Substance: LIMAPROST

REACTIONS (1)
  - Loss of consciousness [Recovered/Resolved]

NARRATIVE: CASE EVENT DATE: 20190806
